FAERS Safety Report 7124551-4 (Version None)
Quarter: 2010Q4

REPORT INFORMATION
  Report Type: 
  Country: None (occurrence: None)
  Receive Date: 20101129
  Receipt Date: 20101028
  Transmission Date: 20110411
  Serious: Yes (Hospitalization)
  Sender: FDA-Public Use
  Company Number: GB-AMGEN-GBRCT2010001815

PATIENT

DRUGS (6)
  1. ETANERCEPT [Suspect]
     Indication: RHEUMATOID ARTHRITIS
     Dosage: 25 MG, 2 TIMES/WK
     Route: 058
     Dates: start: 20040907
  2. HYDROXYCHLOROQUINE SULFATE [Concomitant]
     Dosage: UNKNOWN
  3. CELECOXIB [Concomitant]
     Dosage: UNKNOWN
  4. FOSAMAX [Concomitant]
     Dosage: UNKNOWN
  5. METHOTREXATE [Concomitant]
     Dosage: UNKNOWN
     Dates: start: 20050914
  6. CALCEOS [Concomitant]
     Dosage: UNKNOWN

REACTIONS (2)
  - JOINT ARTHROPLASTY [None]
  - POST PROCEDURAL CELLULITIS [None]
